FAERS Safety Report 20589164 (Version 1)
Quarter: 2022Q1

REPORT INFORMATION
  Report Type: Spontaneous
  Country: GB (occurrence: GB)
  Receive Date: 20220314
  Receipt Date: 20220314
  Transmission Date: 20220424
  Serious: Yes (Other)
  Sender: FDA-Public Use
  Company Number: GB-009507513-2202GBR007840

PATIENT
  Age: 42 Year
  Sex: Female

DRUGS (3)
  1. CARBOPLATIN [Suspect]
     Active Substance: CARBOPLATIN
     Indication: Non-small cell lung cancer
     Dosage: CYCLICAL
     Route: 065
     Dates: start: 202004
  2. PEMETREXED [Suspect]
     Active Substance: PEMETREXED
     Indication: Non-small cell lung cancer
     Dosage: UNK, CYCLICAL
     Route: 065
     Dates: start: 202004
  3. KEYTRUDA [Suspect]
     Active Substance: PEMBROLIZUMAB
     Indication: Non-small cell lung cancer
     Dates: start: 202004

REACTIONS (5)
  - Malignant neoplasm progression [Unknown]
  - Fatigue [Unknown]
  - Pain [Recovering/Resolving]
  - Anaemia [Unknown]
  - Drug ineffective [Unknown]
